FAERS Safety Report 12840729 (Version 1)
Quarter: 2016Q4

REPORT INFORMATION
  Report Type: Spontaneous
  Country: HK (occurrence: HK)
  Receive Date: 20161012
  Receipt Date: 20161012
  Transmission Date: 20170207
  Serious: Yes (Hospitalization)
  Sender: FDA-Public Use
  Company Number: HK-BAYER-2016-193201

PATIENT
  Sex: Male

DRUGS (1)
  1. STIVARGA [Suspect]
     Active Substance: REGORAFENIB

REACTIONS (5)
  - Hepatic function abnormal [None]
  - Rectal haemorrhage [None]
  - Haemorrhage urinary tract [None]
  - Jaundice [None]
  - Carcinoembryonic antigen increased [None]

NARRATIVE: CASE EVENT DATE: 20160930
